FAERS Safety Report 9915812 (Version 1)
Quarter: 2014Q1

REPORT INFORMATION
  Report Type: Spontaneous
  Country: US (occurrence: None)
  Receive Date: 20140220
  Receipt Date: 20140220
  Transmission Date: 20141002
  Serious: Yes (Death)
  Sender: FDA-Public Use
  Company Number: None

PATIENT
  Age: 79 Year
  Sex: Female
  Weight: 54 kg

DRUGS (10)
  1. TYGACIL [Suspect]
     Indication: URINARY TRACT INFECTION
     Route: 042
     Dates: start: 20131130, end: 20131202
  2. DOCUSATE [Concomitant]
  3. FUROSEMIDE [Concomitant]
  4. LEVAQUIN [Concomitant]
  5. METRONIDAZOLE [Concomitant]
  6. PREDNISONE [Concomitant]
  7. VANCOMYCIN [Concomitant]
  8. ACETAMINOPHEN [Concomitant]
  9. ASPIRIN [Concomitant]
  10. DILTIAZEM [Concomitant]

REACTIONS (2)
  - Peritonitis [None]
  - Intestinal ischaemia [None]
